FAERS Safety Report 8255873-1 (Version None)
Quarter: 2012Q2

REPORT INFORMATION
  Report Type: 
  Country: None (occurrence: None)
  Receive Date: 20120403
  Receipt Date: 20120326
  Transmission Date: 20120825
  Serious: Yes (Hospitalization)
  Sender: FDA-Public Use
  Company Number: US-ACTELION-A-US2012-63220

PATIENT

DRUGS (3)
  1. COUMADIN [Concomitant]
  2. TRACLEER [Suspect]
     Indication: PULMONARY ARTERIAL HYPERTENSION
     Dosage: UNK
     Route: 048
     Dates: start: 20111215
  3. ADCIRCA [Concomitant]

REACTIONS (4)
  - HAEMORRHAGE [None]
  - TRANSFUSION [None]
  - FLUID OVERLOAD [None]
  - HYPOTENSION [None]
